FAERS Safety Report 9559871 (Version 2)
Quarter: 2013Q4

REPORT INFORMATION
  Report Type: Spontaneous
  Country: FR (occurrence: FR)
  Receive Date: 20130927
  Receipt Date: 20131014
  Transmission Date: 20140711
  Serious: No
  Sender: FDA-Public Use
  Company Number: FR-JNJFOC-20130912809

PATIENT
  Age: 75 Year
  Sex: Male
  Weight: 47 kg

DRUGS (4)
  1. ZYTIGA [Suspect]
     Indication: PROSTATE CANCER
     Route: 048
     Dates: start: 20130719
  2. EPREX [Concomitant]
     Indication: ANAEMIA
     Route: 058
     Dates: start: 20130916
  3. FIRMAGON [Concomitant]
     Indication: ANTIANDROGEN THERAPY
     Route: 058
     Dates: start: 20130524
  4. XGEVA [Concomitant]
     Indication: METASTASES TO BONE
     Route: 058
     Dates: start: 20130524

REACTIONS (1)
  - Priapism [Not Recovered/Not Resolved]
